FAERS Safety Report 7270181-3 (Version None)
Quarter: 2011Q1

REPORT INFORMATION
  Report Type: 
  Country: None (occurrence: None)
  Receive Date: 20110202
  Receipt Date: 20110120
  Transmission Date: 20110831
  Serious: Yes (Other)
  Sender: FDA-Public Use
  Company Number: JP-ELI_LILLY_AND_COMPANY-JP201101000812

PATIENT
  Age: 43 Year
  Sex: Male

DRUGS (8)
  1. PAROXETINE HCL [Concomitant]
     Dosage: 40 MG, DAILY (1/D)
     Route: 048
     Dates: start: 20101001
  2. MAPROTILINE [Concomitant]
     Indication: MAJOR DEPRESSION
     Dosage: 75 MG, DAILY (1/D)
     Route: 048
     Dates: start: 20100401, end: 20101001
  3. MIRTAZAPINE [Concomitant]
     Indication: MAJOR DEPRESSION
     Dosage: 22.5 MG, DAILY (1/D)
     Route: 048
     Dates: start: 20100101, end: 20100901
  4. PAROXETINE HCL [Concomitant]
     Indication: MAJOR DEPRESSION
     Dosage: UNK, DAILY (1/D)
     Route: 048
  5. CYMBALTA [Suspect]
     Indication: MAJOR DEPRESSION
     Dosage: 20 MG, DAILY (1/D)
     Route: 048
     Dates: start: 20101001, end: 20101001
  6. LITHIUM CARBONATE [Concomitant]
     Indication: MAJOR DEPRESSION
     Dosage: 100 MG, UNK
     Route: 048
     Dates: start: 20101001
  7. NORTRIPTYLINE [Concomitant]
     Indication: MAJOR DEPRESSION
     Dosage: 150 MG, DAILY (1/D)
     Route: 048
     Dates: start: 20090101
  8. MIRTAZAPINE [Concomitant]
     Dosage: 45 MG, DAILY (1/D)
     Route: 048
     Dates: start: 20100901

REACTIONS (2)
  - CONVULSION [None]
  - LOSS OF CONSCIOUSNESS [None]
